FAERS Safety Report 8009463-6 (Version None)
Quarter: 2011Q4

REPORT INFORMATION
  Report Type: 
  Country: None (occurrence: None)
  Receive Date: 20111227
  Receipt Date: 20111222
  Transmission Date: 20120403
  Serious: Yes (Other)
  Sender: FDA-Public Use
  Company Number: NL-SANOFI-AVENTIS-2011SA084316

PATIENT
  Age: 54 Year
  Sex: Male

DRUGS (5)
  1. DIAZEPAM [Concomitant]
     Route: 048
  2. ROSUVASTATIN CALCIUM [Concomitant]
     Route: 048
  3. CITALOPRAM HYDROBROMIDE [Concomitant]
  4. OMEPRAZOLE [Concomitant]
  5. PLAVIX [Suspect]
     Route: 048
     Dates: start: 20061001

REACTIONS (1)
  - PSORIASIS [None]
